FAERS Safety Report 6241439-1 (Version None)
Quarter: 2009Q2

REPORT INFORMATION
  Report Type: 
  Country: None (occurrence: None)
  Receive Date: 20090619
  Receipt Date: 20090619
  Transmission Date: 20091009
  Serious: No
  Sender: FDA-Public Use
  Company Number: None

PATIENT
  Sex: Female
  Weight: 85.7298 kg

DRUGS (2)
  1. ZICAM COLD REMEDY GEL 0.5 FL OZ NASAL MATRIXX [Suspect]
     Indication: NASOPHARYNGITIS
     Dosage: 1 PUMP PER NOSTRIL EVERY 2 - 4 HOURS NASAL  48 HRS. AT COLD ONSET
     Route: 045
  2. ZICAM COLD REMEDY GEL SWABS MATRIXX [Suspect]
     Indication: NASOPHARYNGITIS
     Dosage: 1 SWAB EVERY 4 HRS NASAL  48 HRS. AT COLD ONSET
     Route: 045

REACTIONS (1)
  - HYPOSMIA [None]
